FAERS Safety Report 24195506 (Version 1)
Quarter: 2024Q3

REPORT INFORMATION
  Report Type: Spontaneous
  Country: US (occurrence: None)
  Receive Date: 20240809
  Receipt Date: 20240809
  Transmission Date: 20241017
  Serious: No
  Sender: Public
  Company Number: None

PATIENT
  Age: 63 Year
  Sex: Female

DRUGS (2)
  1. LENALIDOMIDE [Suspect]
     Active Substance: LENALIDOMIDE
     Indication: Follicular lymphoma
     Dosage: FREQUENCY : DAILY;?
     Route: 048
     Dates: start: 202405
  2. hydrocortisoe 1% [Concomitant]

REACTIONS (3)
  - Rash [None]
  - Urinary retention [None]
  - Chills [None]

NARRATIVE: CASE EVENT DATE: 20240701
